FAERS Safety Report 14759653 (Version 1)
Quarter: 2018Q2

REPORT INFORMATION
  Report Type: Spontaneous
  Country: US (occurrence: US)
  Receive Date: 20180413
  Receipt Date: 20180413
  Transmission Date: 20180711
  Serious: No
  Sender: FDA-Public Use
  Company Number: US-MYLANLABS-2018M1019102

PATIENT
  Sex: Female
  Weight: 70 kg

DRUGS (1)
  1. LIDOCAINE PATCH [Suspect]
     Active Substance: LIDOCAINE
     Indication: PAIN
     Dosage: 5 %, UNK
     Route: 003

REACTIONS (10)
  - Drug effect decreased [Not Recovered/Not Resolved]
  - Product adhesion issue [Unknown]
  - Off label use [Unknown]
  - Product quality issue [Unknown]
  - Hyperhidrosis [Not Recovered/Not Resolved]
  - Application site erythema [Not Recovered/Not Resolved]
  - Drug dose omission [Not Recovered/Not Resolved]
  - Application site irritation [Not Recovered/Not Resolved]
  - Scratch [Not Recovered/Not Resolved]
  - Skin disorder [Unknown]
